FAERS Safety Report 4316242-X (Version None)
Quarter: 2004Q1

REPORT INFORMATION
  Report Type: 
  Country: None (occurrence: None)
  Receive Date: 20040312
  Receipt Date: 20040210
  Transmission Date: 20041129
  Serious: Yes (Disabling)
  Sender: FDA-Public Use
  Company Number: JP-ROCHE-358972

PATIENT
  Age: 66 Year
  Sex: Male
  Weight: 44 kg

DRUGS (5)
  1. TAMIFLU [Suspect]
     Route: 048
     Dates: start: 20040209, end: 20040210
  2. UNIPHYL [Concomitant]
     Route: 048
     Dates: start: 20010714
  3. ONON [Concomitant]
     Route: 048
     Dates: start: 20010714
  4. SELBEX [Concomitant]
     Indication: GASTRITIS
     Route: 048
     Dates: start: 20010614
  5. FLUTICASONE PROPIONATE [Concomitant]
     Route: 055
     Dates: start: 20020528

REACTIONS (4)
  - CONVULSION [None]
  - FAECAL INCONTINENCE [None]
  - FALL [None]
  - LOSS OF CONSCIOUSNESS [None]
